FAERS Safety Report 7715342-1 (Version None)
Quarter: 2011Q3

REPORT INFORMATION
  Report Type: 
  Country: None (occurrence: None)
  Receive Date: 20110829
  Receipt Date: 20110818
  Transmission Date: 20111222
  Serious: Yes (Other)
  Sender: FDA-Public Use
  Company Number: US-AMGEN-USASP2011042226

PATIENT
  Age: 61 Year
  Sex: Female

DRUGS (1)
  1. ENBREL [Suspect]
     Indication: RHEUMATOID ARTHRITIS
     Dosage: 50 MG, QWK
     Dates: start: 20080830

REACTIONS (7)
  - DIABETES MELLITUS [None]
  - SCAR PAIN [None]
  - URINARY TRACT INFECTION [None]
  - MASS [None]
  - SKIN EXFOLIATION [None]
  - FURUNCLE [None]
  - INJECTION SITE PAIN [None]
